FAERS Safety Report 5513575-6 (Version None)
Quarter: 2007Q4

REPORT INFORMATION
  Report Type: 
  Country: None (occurrence: None)
  Receive Date: 20071108
  Receipt Date: 20071029
  Transmission Date: 20080405
  Serious: Yes (Hospitalization)
  Sender: FDA-Public Use
  Company Number: ADE2007-0029

PATIENT
  Age: 78 Year
  Sex: Female
  Weight: 56 kg

DRUGS (2)
  1. CIPROFLOXACIN HCL [Suspect]
     Indication: BRONCHITIS
     Dosage: 750MG TWICE DAILY PO
     Route: 048
  2. UNSPECIFIED LOW-DOSE ANGIOTENSIN-CONVERTING ENZYME INHIBITOR: LONG TER [Concomitant]

REACTIONS (7)
  - BIOPSY KIDNEY ABNORMAL [None]
  - BLOOD CREATININE INCREASED [None]
  - COUGH [None]
  - CRYSTAL URINE PRESENT [None]
  - RED BLOOD CELLS URINE POSITIVE [None]
  - SPECIFIC GRAVITY URINE DECREASED [None]
  - URINE OUTPUT DECREASED [None]
